FAERS Safety Report 6992338-9 (Version None)
Quarter: 2010Q3

REPORT INFORMATION
  Report Type: 
  Country: None (occurrence: None)
  Receive Date: 20100916
  Receipt Date: 20100903
  Transmission Date: 20110219
  Serious: Yes (Other)
  Sender: FDA-Public Use
  Company Number: 105718

PATIENT
  Age: 23 Year
  Sex: Female

DRUGS (1)
  1. KETAMINE HCL [Suspect]
     Indication: DRUG ABUSER

REACTIONS (6)
  - ABDOMINAL PAIN LOWER [None]
  - CYSTITIS [None]
  - DRUG ABUSE [None]
  - NOCTURIA [None]
  - POLLAKIURIA [None]
  - TREATMENT FAILURE [None]
